FAERS Safety Report 5836250-7 (Version None)
Quarter: 2008Q3

REPORT INFORMATION
  Report Type: 
  Country: None (occurrence: None)
  Receive Date: 20080807
  Receipt Date: 20080729
  Transmission Date: 20090109
  Serious: Yes (Other)
  Sender: FDA-Public Use
  Company Number: GB-RANBAXY-2008RR-16839

PATIENT

DRUGS (3)
  1. GABAPENTIN [Suspect]
     Route: 048
  2. LYRICA [Suspect]
     Route: 048
  3. ACE INHIBITOR NOS [Concomitant]

REACTIONS (3)
  - BLOOD PRESSURE DECREASED [None]
  - CARDIAC FAILURE [None]
  - DRUG INEFFECTIVE [None]
